FAERS Safety Report 7623762-9 (Version None)
Quarter: 2011Q3

REPORT INFORMATION
  Report Type: 
  Country: None (occurrence: None)
  Receive Date: 20110720
  Receipt Date: 20110711
  Transmission Date: 20111222
  Serious: Yes (Hospitalization)
  Sender: FDA-Public Use
  Company Number: FR-GLAXOSMITHKLINE-B0732081A

PATIENT
  Age: 40 Year
  Sex: Female

DRUGS (3)
  1. ZOLOFT [Concomitant]
     Route: 065
  2. LAMICTAL [Suspect]
     Indication: BIPOLAR DISORDER
     Dosage: 50MG SEE DOSAGE TEXT
     Route: 048
     Dates: start: 20110312, end: 20110321
  3. IBUPROFEN [Suspect]
     Indication: MIGRAINE
     Route: 048
     Dates: start: 20110302, end: 20110322

REACTIONS (10)
  - CYTOLYTIC HEPATITIS [None]
  - PRURITUS GENERALISED [None]
  - OEDEMA PERIPHERAL [None]
  - NASOPHARYNGITIS [None]
  - SKIN BURNING SENSATION [None]
  - DERMATITIS EXFOLIATIVE [None]
  - LICHENOID KERATOSIS [None]
  - RASH [None]
  - PYREXIA [None]
  - RASH GENERALISED [None]
